FAERS Safety Report 10215141 (Version 2)
Quarter: 2014Q2

REPORT INFORMATION
  Report Type: Spontaneous
  Country: CA (occurrence: CA)
  Receive Date: 20140603
  Receipt Date: 20140630
  Transmission Date: 20141212
  Serious: Yes (Death, Hospitalization, Other)
  Sender: FDA-Public Use
  Company Number: CA-GILEAD-2014-0104115

PATIENT
  Age: 73 Year
  Sex: Female
  Weight: 81.8 kg

DRUGS (13)
  1. AMBRISENTAN [Suspect]
     Indication: PULMONARY HYPERTENSION
     Dosage: 10MG PER DAY
     Route: 065
     Dates: start: 20140403
  2. WARFARIN [Concomitant]
  3. PREDNISONE [Concomitant]
  4. VENLAFAXINE [Concomitant]
  5. VALSARTAN [Concomitant]
  6. ALDACTONE                          /00006201/ [Concomitant]
  7. RABEPRAZOLE [Concomitant]
  8. CELLCEPT                           /01275102/ [Concomitant]
  9. LASIX                              /00032601/ [Concomitant]
  10. DIGOXIN [Concomitant]
  11. PRADAXA [Concomitant]
  12. BISOPROLOL [Concomitant]
  13. FELODIPINE [Concomitant]

REACTIONS (6)
  - Sepsis [Not Recovered/Not Resolved]
  - Death [Fatal]
  - Pulmonary oedema [Not Recovered/Not Resolved]
  - Ascites [Not Recovered/Not Resolved]
  - Dyspnoea [Not Recovered/Not Resolved]
  - Lung disorder [Not Recovered/Not Resolved]
